FAERS Safety Report 4543128-8 (Version None)
Quarter: 2004Q4

REPORT INFORMATION
  Report Type: 
  Country: None (occurrence: None)
  Receive Date: 20041229
  Receipt Date: 20041005
  Transmission Date: 20050328
  Serious: Yes (Hospitalization)
  Sender: FDA-Public Use
  Company Number: D01200404035

PATIENT
  Age: 56 Year
  Sex: Male

DRUGS (3)
  1. CLOPIDOGREL BISULFATE [Suspect]
     Indication: ANGIOPATHY
     Dosage: 75MGQD/75MGQD
     Route: 048
     Dates: start: 20040812
  2. CLOPIDOGREL BISULFATE [Suspect]
     Indication: PROPHYLAXIS
     Dosage: 75MGQD/75MGQD
     Route: 048
     Dates: start: 20040812
  3. ACETYLSALICYLIC ACID SRT [Concomitant]

REACTIONS (4)
  - ANAEMIA [None]
  - DIZZINESS [None]
  - DYSPNOEA [None]
  - OESOPHAGEAL ULCER [None]
